FAERS Safety Report 9434756 (Version 1)
Quarter: 2013Q3

REPORT INFORMATION
  Report Type: Spontaneous
  Country: DK (occurrence: BE)
  Receive Date: 20130801
  Receipt Date: 20130801
  Transmission Date: 20140515
  Serious: Yes (Hospitalization, Other)
  Sender: FDA-Public Use
  Company Number: BE-FRI-1000047324

PATIENT
  Age: 58 Year
  Sex: Female
  Weight: 73 kg

DRUGS (6)
  1. ESCITALOPRAM [Suspect]
     Indication: ANXIETY DISORDER
     Dosage: 5 MG
     Route: 048
     Dates: start: 2011
  2. ESCITALOPRAM [Suspect]
     Dosage: 10 MG
     Route: 048
  3. ESCITALOPRAM [Suspect]
     Dosage: 5 MG
     Route: 048
  4. ESCITALOPRAM [Suspect]
     Dosage: 5 MG
     Route: 048
  5. STAURODORM [Concomitant]
     Indication: INSOMNIA
     Route: 048
  6. HALDOL [Concomitant]
     Indication: RESTLESSNESS
     Route: 048
     Dates: start: 2011

REACTIONS (4)
  - Hyponatraemia [Recovered/Resolved]
  - Diabetes mellitus [Not Recovered/Not Resolved]
  - Weight increased [Not Recovered/Not Resolved]
  - Drug withdrawal syndrome [Recovered/Resolved]
